FAERS Safety Report 13186640 (Version 1)
Quarter: 2017Q1

REPORT INFORMATION
  Report Type: Spontaneous
  Country: GB (occurrence: GB)
  Receive Date: 20170205
  Receipt Date: 20170205
  Transmission Date: 20170428
  Serious: Yes (Disabling)
  Sender: FDA-Public Use
  Company Number: PHHY2017GB013973

PATIENT
  Sex: Female

DRUGS (7)
  1. FOSCARNET [Suspect]
     Active Substance: FOSCARNET
     Indication: OPHTHALMIC HERPES ZOSTER
     Route: 065
  2. VALACICLOVIR SANDOZ [Suspect]
     Active Substance: VALACYCLOVIR HYDROCHLORIDE
     Indication: OPHTHALMIC HERPES ZOSTER
     Dosage: 3 G, UNK
     Route: 048
  3. TRAMADOL. [Concomitant]
     Active Substance: TRAMADOL
     Indication: POST HERPETIC NEURALGIA
     Dosage: UNK UNK, PRN
     Route: 065
  4. MIRTAZAPINE. [Concomitant]
     Active Substance: MIRTAZAPINE
     Indication: PRODUCT USED FOR UNKNOWN INDICATION
     Dosage: 15 MG AT NIGHT
     Route: 065
  5. ACYCLOVIR. [Suspect]
     Active Substance: ACYCLOVIR
     Indication: OPHTHALMIC HERPES ZOSTER
     Dosage: 800 MG, QD
     Route: 048
  6. ACYCLOVIR. [Suspect]
     Active Substance: ACYCLOVIR
     Dosage: 1.8 G, UNK
     Route: 042
  7. PREGABALIN. [Concomitant]
     Active Substance: PREGABALIN
     Indication: POST HERPETIC NEURALGIA
     Dosage: 450 MG, QD
     Route: 065

REACTIONS (1)
  - Visual acuity reduced [Not Recovered/Not Resolved]
